FAERS Safety Report 22398213 (Version 1)
Quarter: 2023Q2

REPORT INFORMATION
  Report Type: Spontaneous
  Country: JP (occurrence: JP)
  Receive Date: 20230602
  Receipt Date: 20230602
  Transmission Date: 20230722
  Serious: Yes (Other)
  Sender: FDA-Public Use
  Company Number: JP-INSMED, INC.-2023-01971-JP

PATIENT

DRUGS (1)
  1. AMIKACIN SULFATE [Suspect]
     Active Substance: AMIKACIN SULFATE
     Indication: Mycobacterium avium complex infection
     Route: 055

REACTIONS (2)
  - Pulmonary toxicity [Unknown]
  - Laryngeal discomfort [Unknown]
